FAERS Safety Report 25597667 (Version 2)
Quarter: 2025Q3

REPORT INFORMATION
  Report Type: Report from Study
  Country: CA (occurrence: CA)
  Receive Date: 20250723
  Receipt Date: 20250729
  Transmission Date: 20251021
  Serious: Yes (Other)
  Sender: ABBVIE
  Company Number: CA-ABBVIE-6380362

PATIENT
  Age: 74 Year
  Sex: Male

DRUGS (3)
  1. VENCLEXTA [Suspect]
     Active Substance: VENETOCLAX
     Indication: Acute myeloid leukaemia
     Dosage: FREQUENCY: 100 MG TABLET 400 MG DAILY?LAST ADMIN DATE: 2025
     Route: 048
     Dates: start: 20250619
  2. VENCLEXTA [Suspect]
     Active Substance: VENETOCLAX
     Indication: Acute myeloid leukaemia
     Dosage: ONCE DAILY FOR DAY 1-7 OF EACH 28 DAY CYCLE
     Route: 048
  3. AZACITIDINE [Concomitant]
     Active Substance: AZACITIDINE
     Indication: Product used for unknown indication

REACTIONS (3)
  - Myocardial infarction [Unknown]
  - White blood cell count abnormal [Unknown]
  - Blood disorder [Unknown]

NARRATIVE: CASE EVENT DATE: 20250101
